FAERS Safety Report 5191637-3 (Version None)
Quarter: 2006Q4

REPORT INFORMATION
  Report Type: 
  Country: None (occurrence: None)
  Receive Date: 20061219
  Receipt Date: 20061208
  Transmission Date: 20070319
  Serious: Yes (Hospitalization)
  Sender: FDA-Public Use
  Company Number: 2006150491

PATIENT
  Age: 35 Year
  Sex: Female

DRUGS (3)
  1. XANAX [Suspect]
     Dosage: ORAL
     Route: 048
     Dates: start: 20061107, end: 20061107
  2. ZOLOFT [Suspect]
     Dosage: ORAL
     Route: 048
     Dates: start: 20061107, end: 20061107
  3. ENTUMIN (CLOTIAPINE) [Suspect]
     Dosage: ORAL
     Route: 048
     Dates: start: 20061107, end: 20061107

REACTIONS (4)
  - BLOOD ALCOHOL INCREASED [None]
  - DRUG ABUSER [None]
  - HYPOTENSION [None]
  - SOMNOLENCE [None]
